FAERS Safety Report 10958912 (Version 1)
Quarter: 2015Q1

REPORT INFORMATION
  Report Type: Report from Study
  Country: MX (occurrence: MX)
  Receive Date: 20150327
  Receipt Date: 20150327
  Transmission Date: 20150721
  Serious: Yes (Other)
  Sender: FDA-Public Use
  Company Number: MX-ROCHE-1555659

PATIENT

DRUGS (7)
  1. RALTEGRAVIR [Concomitant]
     Active Substance: RALTEGRAVIR
  2. TENOFOVIR [Concomitant]
     Active Substance: TENOFOVIR
  3. TIPRANAVIR [Concomitant]
     Active Substance: TIPRANAVIR
  4. ENFUVIRTIDE [Suspect]
     Active Substance: ENFUVIRTIDE
     Indication: HIV INFECTION
     Route: 065
  5. RITONAVIR. [Concomitant]
     Active Substance: RITONAVIR
  6. DARUNAVIR [Concomitant]
     Active Substance: DARUNAVIR
  7. ETRAVIRINE [Concomitant]
     Active Substance: ETRAVIRINE

REACTIONS (3)
  - Injection site nodule [Unknown]
  - Systemic inflammatory response syndrome [Unknown]
  - Injection site pain [Unknown]
